FAERS Safety Report 20940632 (Version 2)
Quarter: 2022Q3

REPORT INFORMATION
  Report Type: Spontaneous
  Country: US (occurrence: US)
  Receive Date: 20220609
  Receipt Date: 20220702
  Transmission Date: 20221027
  Serious: Yes (Life-Threatening, Hospitalization)
  Sender: FDA-Public Use
  Company Number: US-TEVA-2022-US-2043605

PATIENT
  Age: 62 Year
  Sex: Female

DRUGS (7)
  1. NOREPINEPHRINE [Suspect]
     Active Substance: NOREPINEPHRINE
     Indication: Carcinoid crisis
     Route: 042
  2. VASOPRESSIN [Suspect]
     Active Substance: VASOPRESSIN
     Indication: Carcinoid crisis
     Route: 042
  3. PHENYLEPHRINE [Suspect]
     Active Substance: PHENYLEPHRINE HYDROCHLORIDE
     Indication: Carcinoid crisis
     Route: 042
  4. MILRINONE [Suspect]
     Active Substance: MILRINONE
     Indication: Carcinoid crisis
     Route: 042
  5. OCTREOTIDE [Concomitant]
     Active Substance: OCTREOTIDE
     Indication: Carcinoid crisis
     Dosage: 600 MICROGRAM DAILY; TID
     Route: 042
  6. OCTREOTIDE [Concomitant]
     Active Substance: OCTREOTIDE
     Indication: Prophylaxis
     Route: 042
  7. OCTREOTIDE [Concomitant]
     Active Substance: OCTREOTIDE
     Route: 042

REACTIONS (2)
  - Carcinoid syndrome [Unknown]
  - Drug ineffective [Unknown]
